FAERS Safety Report 23914213 (Version 1)
Quarter: 2024Q2

REPORT INFORMATION
  Report Type: Spontaneous
  Country: IT (occurrence: IT)
  Receive Date: 20240529
  Receipt Date: 20240529
  Transmission Date: 20240715
  Serious: Yes (Death, Life-Threatening, Hospitalization, Other)
  Sender: FDA-Public Use
  Company Number: IT-CELLTRION HEALTHCARE HUNGARY KFT-2021IT019514

PATIENT
  Age: 74 Year
  Sex: Male

DRUGS (19)
  1. VORICONAZOLE [Concomitant]
     Active Substance: VORICONAZOLE
     Indication: Antifungal treatment
     Dosage: UNK ()
  2. PIPERACILLIN AND TAZOBACTAM [Suspect]
     Active Substance: PIPERACILLIN SODIUM\TAZOBACTAM SODIUM
     Indication: Antibiotic therapy
     Dosage: ()
  3. PIPERACILLIN AND TAZOBACTAM [Concomitant]
     Active Substance: PIPERACILLIN SODIUM\TAZOBACTAM SODIUM
     Indication: Infection
     Dosage: UNK ()
  4. PIPERACILLIN AND TAZOBACTAM [Concomitant]
     Active Substance: PIPERACILLIN SODIUM\TAZOBACTAM SODIUM
     Indication: Infection
     Dosage: UNK ()
  5. RITUXIMAB [Suspect]
     Active Substance: RITUXIMAB
     Indication: Mantle cell lymphoma
     Dosage: 375 MG/M2 EVERY 28 DAYS (ON DAY 2)
  6. RITUXIMAB [Suspect]
     Active Substance: RITUXIMAB
     Indication: Mantle cell lymphoma
     Dosage: 375 MG/M2 EVERY 28 DAYS (ON DAY 2)
  7. RITUXIMAB [Suspect]
     Active Substance: RITUXIMAB
     Indication: Mantle cell lymphoma
     Dosage: 375 MG/M2, UNKNOWN FREQ. ON DAY 2
  8. RITUXIMAB [Suspect]
     Active Substance: RITUXIMAB
     Indication: Mantle cell lymphoma
     Dosage: UNK ()
  9. RITUXIMAB [Suspect]
     Active Substance: RITUXIMAB
     Indication: Mantle cell lymphoma
     Dosage: 375 MG/M2 EVERY 28 DAYS (ON DAY 2)
  10. RITUXIMAB [Suspect]
     Active Substance: RITUXIMAB
     Indication: Mantle cell lymphoma
     Dosage: 375 MG/M2 ON DAY 2 EVERY 28 DAYS. ; CYCLICAL
  11. LEVOFLOXACIN [Concomitant]
     Active Substance: LEVOFLOXACIN
     Indication: Cytomegalovirus infection
     Dosage: UNK ()
  12. GANCICLOVIR [Concomitant]
     Active Substance: GANCICLOVIR
     Indication: Cytomegalovirus infection
     Dosage: 5 MG/KG, EVERY 0.5 DAY
  13. GANCICLOVIR [Concomitant]
     Active Substance: GANCICLOVIR
     Indication: Cytomegalovirus infection
     Dosage: UNK ()
  14. BENDAMUSTINE HYDROCHLORIDE [Suspect]
     Active Substance: BENDAMUSTINE HYDROCHLORIDE
     Indication: Off label use
     Dosage: 70 MG/M2, (ON DAY 1-2) CYCLICAL ; CYCLICAL
  15. BENDAMUSTINE HYDROCHLORIDE [Suspect]
     Active Substance: BENDAMUSTINE HYDROCHLORIDE
     Indication: Off label use
     Dosage: 70 MG/M2 EVERY 28 DAYS
  16. BENDAMUSTINE HYDROCHLORIDE [Suspect]
     Active Substance: BENDAMUSTINE HYDROCHLORIDE
     Indication: Off label use
     Dosage: 70 MG/M2, (ON DAY 1-2) EVERY 28 DAYS, CYCLICAL ; CYCLICAL
  17. BENDAMUSTINE HYDROCHLORIDE [Suspect]
     Active Substance: BENDAMUSTINE HYDROCHLORIDE
     Indication: Off label use
     Dosage: ON DAY 1-2 ; CYCLICAL
  18. FOSCARNET [Suspect]
     Active Substance: FOSCARNET
     Indication: Cytomegalovirus infection
     Dosage: 20 MG/KG
  19. BENDAMUSTINE [Suspect]
     Active Substance: BENDAMUSTINE
     Indication: Mantle cell lymphoma
     Dosage: 70 MG/M2 EVERY 28 DAYS (ON DAY 1-2) CYCLICAL; (70 MG/M2 ON DAY 1-2) EVERY 28 DAYS ; CYCLICAL

REACTIONS (14)
  - Product use issue [Unknown]
  - Off label use [Unknown]
  - Off label use [Unknown]
  - Death [Fatal]
  - Candida infection [Unknown]
  - Cytomegalovirus infection reactivation [Unknown]
  - Pleural effusion [Unknown]
  - Pulmonary oedema [Unknown]
  - Aspergillus infection [Unknown]
  - Drug ineffective [Unknown]
  - Pneumonia cytomegaloviral [Not Recovered/Not Resolved]
  - Interstitial lung disease [Unknown]
  - Cytomegalovirus infection [Unknown]
  - Pericardial effusion [Unknown]
